FAERS Safety Report 8916156 (Version 1)
Quarter: 2012Q4

REPORT INFORMATION
  Report Type: 
  Country: FI (occurrence: FI)
  Receive Date: 20121120
  Receipt Date: 20121120
  Transmission Date: 20130627
  Serious: Yes (Other)
  Sender: FDA-Public Use
  Company Number: FI-ELI_LILLY_AND_COMPANY-FI201210006512

PATIENT
  Age: 74 Year
  Sex: Female

DRUGS (14)
  1. FORSTEO [Suspect]
     Indication: OSTEOPOROSIS
     Dosage: 20 ug, qd
     Route: 058
     Dates: start: 20110113, end: 20121019
  2. SOLUMEDROL [Concomitant]
     Indication: RHEUMATIC DISORDER
     Dosage: 2 mg, UNK
  3. AZAMUN [Concomitant]
     Indication: RHEUMATIC DISORDER
     Dosage: 25 mg, bid
     Route: 048
  4. NORSPAN [Concomitant]
     Indication: PAIN
  5. NAPROMETIN [Concomitant]
     Indication: PAIN
     Dosage: 500 mg, qd
     Route: 048
  6. PARATABS [Concomitant]
     Indication: PAIN
     Dosage: 1 g, tid
     Route: 048
  7. CALCIUM D [Concomitant]
     Indication: MEDICAL DIET
  8. SOLOMET [Concomitant]
     Indication: RHEUMATIC DISORDER
     Dosage: 0.5 DF, qd
     Route: 048
  9. SOMAC [Concomitant]
     Indication: GASTRIC DISORDER
     Dosage: 40 mg, qd
     Route: 048
  10. TENOX [Concomitant]
     Indication: SLEEP DISORDER
     Dosage: 20 mg, qd
     Route: 048
  11. CALCICHEW-D3 FORTE [Concomitant]
     Indication: OSTEOPOROSIS
     Dosage: 1 DF, tid
     Route: 048
  12. OFTAGEL [Concomitant]
     Indication: EYE DISORDER
     Dosage: 1 DF, qid
  13. OXIKLORIN [Concomitant]
     Dosage: 300 mg, qd
     Route: 048
     Dates: end: 201205
  14. CORTISONE [Concomitant]
     Dosage: UNK
     Dates: start: 20121016

REACTIONS (9)
  - Convulsion [Unknown]
  - Visual impairment [Not Recovered/Not Resolved]
  - Back pain [Not Recovered/Not Resolved]
  - Pain [Not Recovered/Not Resolved]
  - Hypokinesia [Unknown]
  - Erythema [Not Recovered/Not Resolved]
  - Hot flush [Unknown]
  - Intentional drug misuse [Unknown]
  - Bone pain [Unknown]
